FAERS Safety Report 6545626-4 (Version None)
Quarter: 2010Q1

REPORT INFORMATION
  Report Type: 
  Country: None (occurrence: None)
  Receive Date: 20100119
  Receipt Date: 20100111
  Transmission Date: 20100710
  Serious: Yes (Other)
  Sender: FDA-Public Use
  Company Number: DSA_41941_2009

PATIENT
  Sex: Female

DRUGS (5)
  1. XENAZINE [Suspect]
     Indication: HUNTINGTON'S CHOREA
     Dosage: 25 MG TID ORAL
     Route: 048
     Dates: start: 20090316
  2. CELEXA [Concomitant]
  3. KLONOPIN [Concomitant]
  4. TRILEPTAL [Concomitant]
  5. CLARITIN /00917501/ [Concomitant]

REACTIONS (4)
  - CRYING [None]
  - DEPRESSION [None]
  - SOMNOLENCE [None]
  - TREMOR [None]
